FAERS Safety Report 24617203 (Version 2)
Quarter: 2024Q4

REPORT INFORMATION
  Report Type: Spontaneous
  Country: US (occurrence: US)
  Receive Date: 20241114
  Receipt Date: 20241224
  Transmission Date: 20250115
  Serious: No
  Sender: Haleon PLC
  Company Number: US-002147023-NVSC2024US080433

PATIENT
  Age: 44 Year
  Sex: Female

DRUGS (1)
  1. TERBINAFINE [Suspect]
     Active Substance: TERBINAFINE\TERBINAFINE HYDROCHLORIDE
     Indication: Product used for unknown indication
     Dosage: TIME INTERVAL: AS NECESSARY: UNKNOWN
     Route: 065

REACTIONS (1)
  - Drug ineffective [Unknown]
